FAERS Safety Report 7278802-6 (Version None)
Quarter: 2011Q1

REPORT INFORMATION
  Report Type: 
  Country: None (occurrence: None)
  Receive Date: 20110207
  Receipt Date: 20110131
  Transmission Date: 20110831
  Serious: Yes (Death, Hospitalization)
  Sender: FDA-Public Use
  Company Number: NL-TEVA-263001ISR

PATIENT
  Age: 59 Year
  Sex: Male

DRUGS (2)
  1. CAPECITABINE [Suspect]
  2. OXALIPLATIN [Suspect]

REACTIONS (4)
  - PYREXIA [None]
  - DIARRHOEA [None]
  - VOMITING [None]
  - LISTERIOSIS [None]
